FAERS Safety Report 7416323-8 (Version None)
Quarter: 2011Q2

REPORT INFORMATION
  Report Type: 
  Country: None (occurrence: None)
  Receive Date: 20110414
  Receipt Date: 20110405
  Transmission Date: 20111010
  Serious: Yes (Other)
  Sender: FDA-Public Use
  Company Number: US-CEPHALON-2011001679

PATIENT
  Age: 19 Year
  Sex: Male

DRUGS (2)
  1. FENTANYL CITRATE [Suspect]
     Route: 002
  2. FENTANYL CITRATE [Suspect]
     Indication: TRIGEMINAL NEURALGIA
     Route: 002

REACTIONS (5)
  - DRUG ABUSE [None]
  - DRUG INEFFECTIVE FOR UNAPPROVED INDICATION [None]
  - DRUG DIVERSION [None]
  - INTENTIONAL DRUG MISUSE [None]
  - DENTAL NECROSIS [None]
